FAERS Safety Report 11976385 (Version 2)
Quarter: 2016Q1

REPORT INFORMATION
  Report Type: Report from Study
  Country: US (occurrence: US)
  Receive Date: 20160129
  Receipt Date: 20160222
  Transmission Date: 20160526
  Serious: Yes (Hospitalization, Other)
  Sender: FDA-Public Use
  Company Number: US-BAYER-2015-378231

PATIENT
  Age: 63 Year
  Sex: Female
  Weight: 57.14 kg

DRUGS (19)
  1. VENLAFAXINE [Concomitant]
     Active Substance: VENLAFAXINE HYDROCHLORIDE
  2. VITAMIN B12 [Concomitant]
     Active Substance: CYANOCOBALAMIN
  3. GENTAMICIN. [Concomitant]
     Active Substance: GENTAMICIN
  4. NEXAVAR [Suspect]
     Active Substance: SORAFENIB
     Indication: OVARIAN CANCER
     Dosage: 200 MG BID FOR MONDAY TO FRIDAY
     Route: 048
     Dates: start: 2008
  5. NEXAVAR [Suspect]
     Active Substance: SORAFENIB
     Indication: OVARIAN CANCER
     Dosage: 200 MG, QD MONDAY THROUGH FRIDAY
     Route: 048
     Dates: end: 20160104
  6. TEMAZEPAM. [Concomitant]
     Active Substance: TEMAZEPAM
  7. DIOVAN [Concomitant]
     Active Substance: VALSARTAN
  8. CALCIUM [Concomitant]
     Active Substance: CALCIUM
  9. NEXAVAR [Suspect]
     Active Substance: SORAFENIB
     Indication: OVARIAN CANCER
     Dosage: 200 MG, BID
     Route: 048
     Dates: start: 20131009
  10. VITAMIN B6 [Concomitant]
     Active Substance: PYRIDOXINE HYDROCHLORIDE
  11. VITAMIN D3 [Concomitant]
     Active Substance: CHOLECALCIFEROL
  12. CELEBREX [Concomitant]
     Active Substance: CELECOXIB
  13. OMEPRAZOLE. [Concomitant]
     Active Substance: OMEPRAZOLE
  14. SILVER SULFADIAZINE. [Concomitant]
     Active Substance: SILVER SULFADIAZINE
  15. MECLIZINE [Concomitant]
     Active Substance: MECLIZINE HYDROCHLORIDE
  16. DOXAZOSIN [Concomitant]
     Active Substance: DOXAZOSIN\DOXAZOSIN MESYLATE
  17. PYRIDOXINE [Concomitant]
     Active Substance: PYRIDOXINE
  18. VENTOLIN HFA [Concomitant]
     Active Substance: ALBUTEROL SULFATE
  19. MUPIROCIN. [Concomitant]
     Active Substance: MUPIROCIN

REACTIONS (5)
  - Malaise [None]
  - Off label use [None]
  - Oral fungal infection [None]
  - Weight decreased [None]
  - Knee operation [None]

NARRATIVE: CASE EVENT DATE: 2015
